FAERS Safety Report 7067418-2 (Version None)
Quarter: 2010Q4

REPORT INFORMATION
  Report Type: 
  Country: None (occurrence: None)
  Receive Date: 20101026
  Receipt Date: 20101026
  Transmission Date: 20110411
  Serious: Yes (Life-Threatening, Hospitalization)
  Sender: FDA-Public Use
  Company Number: None

PATIENT
  Age: 25 Year
  Sex: Male
  Weight: 92.2 kg

DRUGS (2)
  1. CLOZAPINE [Suspect]
     Indication: ASPERGER'S DISORDER
     Dosage: UNKNOWN UNKNOWN PO
     Route: 048
     Dates: start: 20100101, end: 20100930
  2. CLOZAPINE [Suspect]
     Indication: SCHIZOPHRENIA
     Dosage: UNKNOWN UNKNOWN PO
     Route: 048
     Dates: start: 20100101, end: 20100930

REACTIONS (11)
  - DEHYDRATION [None]
  - HEPATIC ENZYME INCREASED [None]
  - HYPOTENSION [None]
  - MALAISE [None]
  - NEUTROPENIA [None]
  - PYREXIA [None]
  - RENAL FAILURE ACUTE [None]
  - RESPIRATORY DISTRESS [None]
  - SINUS TACHYCARDIA [None]
  - UNEVALUABLE EVENT [None]
  - WHITE BLOOD CELL COUNT DECREASED [None]
